FAERS Safety Report 5655363-6 (Version None)
Quarter: 2008Q1

REPORT INFORMATION
  Report Type: 
  Country: None (occurrence: None)
  Receive Date: 20080307
  Receipt Date: 20080226
  Transmission Date: 20080703
  Serious: Yes (Other)
  Sender: FDA-Public Use
  Company Number: JP-MERCK-0802USA05475

PATIENT
  Age: 71 Year
  Sex: Female

DRUGS (11)
  1. STROMECTOL [Suspect]
     Indication: ACARODERMATITIS
     Route: 048
     Dates: start: 20051017, end: 20051017
  2. [THERAPY UNSPECIFIED] [Concomitant]
     Indication: ACARODERMATITIS
     Route: 061
  3. EURAX [Concomitant]
     Indication: ACARODERMATITIS
     Route: 061
  4. POLARAMINE [Concomitant]
     Route: 065
  5. ALDACTONE [Concomitant]
     Route: 048
  6. LASIX [Concomitant]
     Route: 065
  7. FAMOTIDINE [Concomitant]
     Route: 065
  8. LACTULOSE [Concomitant]
     Route: 048
  9. MUCOSTA [Concomitant]
     Route: 048
  10. SYMMETREL [Concomitant]
     Route: 048
  11. LIVACT [Concomitant]
     Route: 048

REACTIONS (1)
  - LIVER DISORDER [None]
